FAERS Safety Report 22296525 (Version 2)
Quarter: 2023Q2

REPORT INFORMATION
  Report Type: Spontaneous
  Country: US (occurrence: US)
  Receive Date: 20230508
  Receipt Date: 20230511
  Transmission Date: 20230721
  Serious: No
  Sender: FDA-Public Use
  Company Number: US-JNJFOC-20230457922

PATIENT
  Age: 5 Year
  Sex: Female

DRUGS (1)
  1. CHILDRENS ZYRTEC ALLERGY [Suspect]
     Active Substance: CETIRIZINE HYDROCHLORIDE
     Indication: Rhinorrhoea
     Route: 048
     Dates: start: 20230423

REACTIONS (2)
  - Regurgitation [Unknown]
  - Product taste abnormal [Unknown]

NARRATIVE: CASE EVENT DATE: 20230423
